FAERS Safety Report 7357462-X (Version None)
Quarter: 2011Q1

REPORT INFORMATION
  Report Type: 
  Country: None (occurrence: None)
  Receive Date: 20110317
  Receipt Date: 20110121
  Transmission Date: 20110831
  Serious: Yes (Hospitalization)
  Sender: FDA-Public Use
  Company Number: US-BAYER-2011-023515

PATIENT
  Weight: 59 kg

DRUGS (16)
  1. YASMIN [Suspect]
     Indication: ACNE
     Dosage: UNK
  2. CHLORHEXIDINE GLUCONATE [Concomitant]
  3. FLUCONAZOLE [Concomitant]
  4. PROCHLORPERAZINE [Concomitant]
  5. CITALOPRAM HYDROBROMIDE [Concomitant]
  6. ALPRAZOLAM [Concomitant]
  7. OCELLA [Suspect]
  8. PROPOXYPHENE HCL AND ACETAMINOPHEN [Concomitant]
  9. CIPROFLOXACIN [Concomitant]
  10. CARBOFED DM [BROMPHEN MAL,DEXTROMET HBR,PSEUDOEPH HCL] [Concomitant]
  11. LORAZEPAM [Concomitant]
  12. AMBIEN [Concomitant]
  13. HYDROCODONE/ACETAMINOPHEN [Concomitant]
  14. ZOLPIDEM [Concomitant]
  15. CEFDINIR [Concomitant]
  16. OMEPRAZOLE [Concomitant]

REACTIONS (1)
  - CHOLECYSTITIS CHRONIC [None]
